FAERS Safety Report 23488720 (Version 3)
Quarter: 2024Q2

REPORT INFORMATION
  Report Type: Spontaneous
  Country: US (occurrence: US)
  Receive Date: 20240206
  Receipt Date: 20240409
  Transmission Date: 20240715
  Serious: Yes (Other)
  Sender: FDA-Public Use
  Company Number: US-PFIZER INC-PV202300044948

PATIENT
  Age: 82 Year
  Sex: Female
  Weight: 57.15 kg

DRUGS (5)
  1. IBRANCE [Suspect]
     Active Substance: PALBOCICLIB
     Indication: Neoplasm malignant
     Dosage: 125MG TABLET 3 WEEKS ON AND ONE WEEK OFF BY MONTH
     Route: 048
  2. IBRANCE [Suspect]
     Active Substance: PALBOCICLIB
     Dosage: 100 MG, CYCLIC (DAILY ON DAYS 1-21 EVERY 28 DAYS)
     Route: 048
  3. IBRANCE [Suspect]
     Active Substance: PALBOCICLIB
     Dosage: 100MG TABLET 3 WEEKS ON AND ONE WEEK OF BY MONTH
     Route: 048
  4. IBRANCE [Suspect]
     Active Substance: PALBOCICLIB
     Dosage: 3 WEEKS ON AND ONE WEEK OFF
     Dates: end: 202401
  5. FASLODEX [Concomitant]
     Active Substance: FULVESTRANT
     Dosage: 2 SHOTS SIMULTANEOUSLY ONCE A MONTH
     Dates: end: 202312

REACTIONS (3)
  - Diarrhoea [Not Recovered/Not Resolved]
  - Neoplasm progression [Unknown]
  - Body height decreased [Unknown]
